FAERS Safety Report 9618796 (Version 1)
Quarter: 2013Q4

REPORT INFORMATION
  Report Type: Spontaneous
  Country: TW (occurrence: TW)
  Receive Date: 20131014
  Receipt Date: 20131014
  Transmission Date: 20140711
  Serious: Yes (Congenital Anomaly)
  Sender: FDA-Public Use
  Company Number: PHHY2013TW114399

PATIENT
  Sex: 0

DRUGS (2)
  1. SEBIVO [Suspect]
     Indication: HEPATITIS B
     Dosage: MATERNAL DOSE: 600 MG/DAY
     Route: 064
  2. SILIBININ [Concomitant]
     Indication: HEPATITIS B
     Dosage: MATERNAL DOSE: 150 MG/DAY
     Route: 064

REACTIONS (4)
  - Heart valve incompetence [Unknown]
  - Ascites [Unknown]
  - Talipes [Unknown]
  - Foetal exposure during pregnancy [Unknown]
